FAERS Safety Report 7662754 (Version 2)
Quarter: 2013Q1

REPORT INFORMATION
  Report Type: Spontaneous
  Country: US (occurrence: US)
  Receive Date: 20101110
  Receipt Date: 20130128
  Transmission Date: 20140127
  Serious: Yes (Death, Hospitalization, Other)
  Sender: FDA-Public Use
  Company Number: US-ELI_LILLY_AND_COMPANY-US201011001109

PATIENT
  Sex: Female
  Weight: 63.49 kg

DRUGS (1)
  1. BYETTA [Suspect]
     Indication: TYPE 2 DIABETES MELLITUS
     Dosage: UNK
     Dates: start: 20061002, end: 20070802

REACTIONS (5)
  - Death [Fatal]
  - Cholangiocarcinoma [Unknown]
  - Hepatic cancer [Unknown]
  - Pancreatitis [Unknown]
  - Renal injury [Unknown]
